FAERS Safety Report 15882830 (Version 1)
Quarter: 2019Q1

REPORT INFORMATION
  Report Type: Spontaneous
  Country: FR (occurrence: FR)
  Receive Date: 20190129
  Receipt Date: 20190129
  Transmission Date: 20190417
  Serious: Yes (Life-Threatening, Hospitalization)
  Sender: FDA-Public Use
  Company Number: FR-TEVA-2019-FR-1003809

PATIENT
  Age: 84 Year
  Sex: Female
  Weight: 81.8 kg

DRUGS (14)
  1. AMLODIPINE [Concomitant]
     Active Substance: AMLODIPINE BESYLATE
     Dosage: 10 MG
     Route: 065
  2. FUROSEMIDE. [Concomitant]
     Active Substance: FUROSEMIDE
     Dosage: 40 MG
  3. KARDEGIC [Concomitant]
     Active Substance: ASPIRIN DL-LYSINE
  4. ATORVASTATINE [Concomitant]
     Active Substance: ATORVASTATIN
     Dosage: 40 MG
  5. NOVORAPID FLEXPEN 100 U/ML, SOLUTION INJECTABLE EN STYLO PR?REMPLI [Concomitant]
     Dosage: FORM STREBGTH:100 U/ML
     Route: 065
  6. GABAPENTIN. [Suspect]
     Active Substance: GABAPENTIN
     Indication: PRODUCT ADMINISTRATION ERROR
     Dosage: 300 MG
     Route: 048
     Dates: start: 20181206
  7. VENLAFAXINE [Suspect]
     Active Substance: VENLAFAXINE HYDROCHLORIDE
     Indication: PRODUCT ADMINISTRATION ERROR
     Dosage: 37.5 MG
     Route: 048
     Dates: start: 20181206
  8. ABASAGLAR 100 UNIT?S/ML, SOLUTION INJECTABLE EN STYLO PR?REMPLI [Concomitant]
     Active Substance: INSULIN GLARGINE
     Dosage: FORM STRENGTH:100U/ML
     Route: 065
  9. DUPHALAC 10 G, POUDRE ORALE OU POUR SOLUTION RECTALE EN SACHET [Concomitant]
  10. TENORETIC 50 MG/12,5 MG, COMPRIM? PELLICUL? S?CABLE [Concomitant]
     Route: 065
  11. RILMENIDINE [Concomitant]
     Active Substance: RILMENIDINE
     Dosage: 1 MG
  12. HYDROCORTISONE ROUSSEL 10 MG, COMPRIM? [Suspect]
     Active Substance: HYDROCORTISONE
     Indication: PRODUCT ADMINISTRATION ERROR
     Dosage: 10 MG
     Route: 048
     Dates: start: 20181206
  13. SERESTA 10 MG, COMPRIM? [Suspect]
     Active Substance: OXAZEPAM
     Indication: PRODUCT ADMINISTRATION ERROR
     Dosage: 20 MG
     Route: 048
     Dates: start: 20181206
  14. INEXIUM 40 MG, COMPRIM? GASTRO-R?SISTANT [Concomitant]
     Active Substance: ESOMEPRAZOLE

REACTIONS (5)
  - Anuria [Recovered/Resolved]
  - Somnolence [Recovered/Resolved]
  - Product administration error [Recovered/Resolved]
  - Hypercapnia [Recovered/Resolved]
  - Wrong patient received product [Recovered/Resolved]

NARRATIVE: CASE EVENT DATE: 20181206
